FAERS Safety Report 5409593-9 (Version None)
Quarter: 2007Q3

REPORT INFORMATION
  Report Type: 
  Country: None (occurrence: None)
  Receive Date: 20070807
  Receipt Date: 20070725
  Transmission Date: 20080115
  Serious: Yes (Hospitalization)
  Sender: FDA-Public Use
  Company Number: 2007SP002708

PATIENT
  Age: 76 Year
  Sex: Male
  Weight: 80.2867 kg

DRUGS (12)
  1. XOPENEX [Suspect]
     Indication: CHRONIC OBSTRUCTIVE PULMONARY DISEASE
     Dosage: BID; INHALATION
     Route: 055
  2. SIMVASTATIN [Concomitant]
  3. LORCET-HD [Concomitant]
  4. GEMFIBROZIL [Concomitant]
  5. TAMSULOSIN HCL [Concomitant]
  6. PRINZIDE [Concomitant]
  7. CYANOCOBALAMIN [Concomitant]
  8. TYLENOL [Concomitant]
  9. PAROXETINE [Concomitant]
  10. RANITIDINE [Concomitant]
  11. FINASTERIDE [Concomitant]
  12. MIRTAZAPINE [Concomitant]

REACTIONS (9)
  - CALCINOSIS [None]
  - DYSPHAGIA [None]
  - FOREIGN BODY TRAUMA [None]
  - HAEMATOCRIT DECREASED [None]
  - HAEMOGLOBIN DECREASED [None]
  - OESOPHAGEAL DISCOMFORT [None]
  - OESOPHAGEAL FOOD IMPACTION [None]
  - RENAL FAILURE [None]
  - SPINAL OSTEOARTHRITIS [None]
